FAERS Safety Report 12699144 (Version 2)
Quarter: 2018Q2

REPORT INFORMATION
  Report Type: Spontaneous
  Country: US (occurrence: US)
  Receive Date: 20160830
  Receipt Date: 20180628
  Transmission Date: 20180711
  Serious: Yes (Death)
  Sender: FDA-Public Use
  Company Number: US-MALLINCKRODT-T201603926

PATIENT
  Sex: Male

DRUGS (1)
  1. FENTANYL CITRATE. [Suspect]
     Active Substance: FENTANYL CITRATE
     Indication: CANCER PAIN
     Dosage: 1-3/DAY SPARINGLY; TRANSMUCOSAL
     Route: 048
     Dates: start: 201602, end: 201608

REACTIONS (1)
  - Disease progression [Fatal]
